FAERS Safety Report 10064768 (Version 3)
Quarter: 2014Q3

REPORT INFORMATION
  Report Type: Spontaneous
  Country: US (occurrence: US)
  Receive Date: 20140408
  Receipt Date: 20140708
  Transmission Date: 20150326
  Serious: Yes (Other)
  Sender: FDA-Public Use
  Company Number: US-GLAXOSMITHKLINE-A1060491A

PATIENT
  Age: 43 Year
  Sex: Female
  Weight: 78.2 kg

DRUGS (6)
  1. POTIGA [Suspect]
     Active Substance: EZOGABINE
     Indication: PRODUCT USED FOR UNKNOWN INDICATION
     Dosage: 100MG THREE TIMES PER DAY
     Route: 048
     Dates: start: 201301
  2. LAMICTAL [Concomitant]
     Active Substance: LAMOTRIGINE
  3. KEPPRA [Concomitant]
     Active Substance: LEVETIRACETAM
  4. DIASTAT [Concomitant]
     Active Substance: DIAZEPAM
  5. DIAZEPAM. [Concomitant]
     Active Substance: DIAZEPAM
  6. VIMPAT [Concomitant]
     Active Substance: LACOSAMIDE

REACTIONS (5)
  - Urinary tract infection [Unknown]
  - Urinary retention [Not Recovered/Not Resolved]
  - Urinary hesitation [Not Recovered/Not Resolved]
  - Anxiety [Unknown]
  - Dysphonia [Unknown]

NARRATIVE: CASE EVENT DATE: 201304
